FAERS Safety Report 7129741-2 (Version None)
Quarter: 2010Q4

REPORT INFORMATION
  Report Type: 
  Country: None (occurrence: None)
  Receive Date: 20101130
  Receipt Date: 20101119
  Transmission Date: 20110411
  Serious: Yes (Other)
  Sender: FDA-Public Use
  Company Number: US-PFIZER INC-2010153550

PATIENT
  Sex: Male

DRUGS (1)
  1. LYRICA [Suspect]
     Dosage: UNK
     Route: 048

REACTIONS (5)
  - AGITATION [None]
  - ANXIETY [None]
  - FEELING ABNORMAL [None]
  - MENTAL IMPAIRMENT [None]
  - RESTLESS LEGS SYNDROME [None]
